FAERS Safety Report 11286783 (Version 1)
Quarter: 2015Q3

REPORT INFORMATION
  Report Type: Report from Study
  Country: CA (occurrence: CA)
  Receive Date: 20150721
  Receipt Date: 20150721
  Transmission Date: 20151125
  Serious: Yes (Other)
  Sender: FDA-Public Use
  Company Number: PHHY2015CA083694

PATIENT
  Age: 55 Year
  Sex: Male

DRUGS (1)
  1. ILARIS [Suspect]
     Active Substance: CANAKINUMAB
     Indication: MUCKLE-WELLS SYNDROME
     Dosage: 150 MG, Q 8 WEEKS
     Route: 058
     Dates: start: 20131212

REACTIONS (8)
  - Visual acuity reduced [Unknown]
  - Glycosylated haemoglobin increased [Unknown]
  - Malaise [Unknown]
  - Thalassaemia trait [Unknown]
  - Prostatic specific antigen increased [Unknown]
  - Fatigue [Unknown]
  - Anaemia [Unknown]
  - Dyslipidaemia [Unknown]

NARRATIVE: CASE EVENT DATE: 20150618
